FAERS Safety Report 25924349 (Version 3)
Quarter: 2025Q4

REPORT INFORMATION
  Report Type: Report from Study
  Country: US (occurrence: US)
  Receive Date: 20251015
  Receipt Date: 20251027
  Transmission Date: 20260118
  Serious: Yes (Hospitalization, Other)
  Sender: SANOFI AVENTIS
  Company Number: US-SA-2025SA305631

PATIENT
  Age: 55 Year
  Sex: Male

DRUGS (2)
  1. AVALGLUCOSIDASE ALFA-NGPT [Suspect]
     Active Substance: AVALGLUCOSIDASE ALFA-NGPT
     Indication: Glycogen storage disease type II
     Dosage: 2400 (UNITS UNSPECIFIED), QOW
     Route: 042
     Dates: start: 202110, end: 2025
  2. AVALGLUCOSIDASE ALFA-NGPT [Suspect]
     Active Substance: AVALGLUCOSIDASE ALFA-NGPT
     Dosage: 2400 (UNITS UNSPECIFIED), QOW
     Route: 042
     Dates: start: 2025

REACTIONS (12)
  - Lumbar vertebral fracture [Not Recovered/Not Resolved]
  - Pulmonary contusion [Recovering/Resolving]
  - Oxygen saturation decreased [Recovering/Resolving]
  - Drug hypersensitivity [Not Recovered/Not Resolved]
  - Hot flush [Not Recovered/Not Resolved]
  - Chest discomfort [Not Recovered/Not Resolved]
  - Dyspnoea [Not Recovered/Not Resolved]
  - Intervertebral disc protrusion [Not Recovered/Not Resolved]
  - Fall [Unknown]
  - Back pain [Not Recovered/Not Resolved]
  - Dyspnoea [Unknown]
  - Injury [Unknown]

NARRATIVE: CASE EVENT DATE: 20250101
